FAERS Safety Report 12065801 (Version 2)
Quarter: 2016Q1

REPORT INFORMATION
  Report Type: Spontaneous
  Country: US (occurrence: US)
  Receive Date: 20160211
  Receipt Date: 20160218
  Transmission Date: 20160526
  Serious: Yes (Other)
  Sender: FDA-Public Use
  Company Number: US-JAZZ-2016-US-002032

PATIENT
  Age: 48 Year
  Sex: Female

DRUGS (3)
  1. PRIALT [Suspect]
     Active Substance: ZICONOTIDE ACETATE
     Dosage: 1.5 ?G, QH
     Route: 037
  2. PRIALT [Suspect]
     Active Substance: ZICONOTIDE ACETATE
     Indication: SPINAL PAIN
     Dosage: UNK ?G, QH
     Route: 037
  3. PRIALT [Suspect]
     Active Substance: ZICONOTIDE ACETATE
     Dosage: 2.08 ?G, QH
     Route: 037

REACTIONS (10)
  - Abasia [Unknown]
  - Unevaluable event [Unknown]
  - Device issue [Unknown]
  - Sexual dysfunction [Unknown]
  - Muscle spasms [Unknown]
  - Melaena [Unknown]
  - Limb discomfort [Unknown]
  - Paraesthesia [Unknown]
  - Activities of daily living impaired [Unknown]
  - Diarrhoea [Unknown]

NARRATIVE: CASE EVENT DATE: 20150415
